FAERS Safety Report 7435735-X (Version None)
Quarter: 2011Q2

REPORT INFORMATION
  Report Type: 
  Country: None (occurrence: None)
  Receive Date: 20110425
  Receipt Date: 20110413
  Transmission Date: 20111010
  Serious: Yes (Hospitalization)
  Sender: FDA-Public Use
  Company Number: US-ELI_LILLY_AND_COMPANY-US201005005772

PATIENT
  Age: 77 Year
  Sex: Female
  Weight: 68.481 kg

DRUGS (3)
  1. FOSAMAX [Concomitant]
     Dosage: UNK
     Dates: start: 20000101
  2. FORTEO [Suspect]
     Indication: OSTEOPOROSIS
     Dosage: UNK, UNKNOWN
     Route: 058
     Dates: start: 20091120
  3. FORTEO [Suspect]
     Dosage: UNK, UNKNOWN
     Route: 065

REACTIONS (4)
  - CONSTIPATION [None]
  - THYROID NEOPLASM [None]
  - FATIGUE [None]
  - TRACHEAL DISORDER [None]
